FAERS Safety Report 23333195 (Version 1)
Quarter: 2023Q4

REPORT INFORMATION
  Report Type: Spontaneous
  Country: US (occurrence: None)
  Receive Date: 20231222
  Receipt Date: 20231222
  Transmission Date: 20240109
  Serious: Yes (Hospitalization)
  Sender: FDA-Public Use
  Company Number: None

PATIENT
  Age: 69 Year
  Sex: Male
  Weight: 130.95 kg

DRUGS (1)
  1. INLYTA [Suspect]
     Active Substance: AXITINIB
     Indication: Renal cell carcinoma
     Dosage: FREQUENCY : TWICE A DAY;?
     Route: 048
     Dates: start: 20231024, end: 20231203

REACTIONS (5)
  - Abdominal pain [None]
  - Hypophagia [None]
  - Hypovolaemia [None]
  - Sepsis [None]
  - Cholecystitis [None]

NARRATIVE: CASE EVENT DATE: 20231203
